FAERS Safety Report 13636597 (Version 1)
Quarter: 2017Q2

REPORT INFORMATION
  Report Type: Spontaneous
  Country: US (occurrence: US)
  Receive Date: 20170531
  Receipt Date: 20170531
  Transmission Date: 20170830
  Serious: No
  Sender: FDA-Public Use
  Company Number: US-ASTELLAS-1835677

PATIENT
  Sex: Female
  Weight: 45.4 kg

DRUGS (1)
  1. TARCEVA [Suspect]
     Active Substance: ERLOTINIB HYDROCHLORIDE
     Indication: PRODUCT USED FOR UNKNOWN INDICATION
     Dosage: TK 1 TAB QD
     Route: 048
     Dates: start: 20160725

REACTIONS (2)
  - Muscular weakness [Unknown]
  - Gingival bleeding [Unknown]
